FAERS Safety Report 9915967 (Version 1)
Quarter: 2014Q1

REPORT INFORMATION
  Report Type: Spontaneous
  Country: US (occurrence: None)
  Receive Date: 20140219
  Receipt Date: 20140219
  Transmission Date: 20141002
  Serious: Yes (Disabling, Other)
  Sender: FDA-Public Use
  Company Number: None

PATIENT
  Age: 36 Year
  Sex: Female
  Weight: 65.32 kg

DRUGS (1)
  1. AVELOX 400 MG BAYER [Suspect]
     Indication: PNEUMONIA BACTERIAL
     Route: 048
     Dates: start: 20140129, end: 20140130

REACTIONS (4)
  - Abdominal discomfort [None]
  - Vomiting [None]
  - Nausea [None]
  - Pain [None]
